FAERS Safety Report 19780760 (Version 1)
Quarter: 2021Q3

REPORT INFORMATION
  Report Type: Spontaneous
  Country: US (occurrence: US)
  Receive Date: 20210902
  Receipt Date: 20210902
  Transmission Date: 20211014
  Serious: No
  Sender: FDA-Public Use
  Company Number: US-PFIZER INC-2021614271

PATIENT
  Age: 55 Year
  Sex: Female
  Weight: 66.68 kg

DRUGS (1)
  1. SOMAVERT [Suspect]
     Active Substance: PEGVISOMANT
     Indication: BLOOD GROWTH HORMONE ABNORMAL
     Dosage: 15 MG, 1X/DAY

REACTIONS (2)
  - Injection site pain [Unknown]
  - Injection site bruising [Unknown]
